FAERS Safety Report 4629255-5 (Version None)
Quarter: 2005Q2

REPORT INFORMATION
  Report Type: 
  Country: None (occurrence: None)
  Receive Date: 20050405
  Receipt Date: 20050322
  Transmission Date: 20051028
  Serious: Yes (Hospitalization)
  Sender: FDA-Public Use
  Company Number: MPS1-10342

PATIENT
  Age: 31 Month
  Sex: Male
  Weight: 11 kg

DRUGS (3)
  1. ALDURAZYME [Suspect]
     Indication: MUCOPOLYSACCHARIDOSIS I
     Dosage: 5.8 MG QWK IV
     Route: 042
     Dates: start: 20050308
  2. ALDURAZYME [Suspect]
     Indication: MUCOPOLYSACCHARIDOSIS I
     Dates: start: 20040401, end: 20040601
  3. ALDURAZYME [Suspect]
     Indication: MUCOPOLYSACCHARIDOSIS I
     Dosage: 8.7 MG QWK IV
     Route: 042
     Dates: start: 20031001, end: 20040212

REACTIONS (2)
  - CONSTIPATION [None]
  - GRAFT VERSUS HOST DISEASE [None]
